FAERS Safety Report 23946558 (Version 1)
Quarter: 2024Q2

REPORT INFORMATION
  Report Type: Spontaneous
  Country: US (occurrence: None)
  Receive Date: 20240606
  Receipt Date: 20240606
  Transmission Date: 20240716
  Serious: Yes (Hospitalization)
  Sender: FDA-Public Use
  Company Number: None

PATIENT
  Age: 59 Year
  Sex: Female
  Weight: 99.7 kg

DRUGS (4)
  1. DARATUMUMAB\HYALURONIDASE-FIHJ [Suspect]
     Active Substance: DARATUMUMAB\HYALURONIDASE-FIHJ
     Dates: end: 20230802
  2. DEXAMETHASONE [Suspect]
     Active Substance: DEXAMETHASONE
     Dates: end: 20230823
  3. LENALIDOMIDE [Suspect]
     Active Substance: LENALIDOMIDE
  4. VELCADE [Suspect]
     Active Substance: BORTEZOMIB
     Dates: end: 20230816

REACTIONS (12)
  - Urinary tract infection [None]
  - Flank pain [None]
  - Pyrexia [None]
  - Fatigue [None]
  - Cough [None]
  - Pulmonary mass [None]
  - Pulmonary cavitation [None]
  - Pneumonia [None]
  - Aspergillus infection [None]
  - Lung consolidation [None]
  - Atypical pneumonia [None]
  - Interstitial lung disease [None]

NARRATIVE: CASE EVENT DATE: 20230825
